FAERS Safety Report 15313991 (Version 5)
Quarter: 2018Q4

REPORT INFORMATION
  Report Type: Spontaneous
  Country: US (occurrence: US)
  Receive Date: 20180824
  Receipt Date: 20181114
  Transmission Date: 20190204
  Serious: No
  Sender: FDA-Public Use
  Company Number: US-BIOGEN-2018BI00620364

PATIENT
  Sex: Female

DRUGS (4)
  1. MONTELUKAST [Concomitant]
     Active Substance: MONTELUKAST SODIUM
     Indication: ASTHMA
     Dosage: MONTELUKAST 109-MS-414
     Route: 065
  2. TECFIDERA [Suspect]
     Active Substance: DIMETHYL FUMARATE
     Indication: MULTIPLE SCLEROSIS
     Dosage: TAKE  1 CAPSULE (240 MG) BY MOUTH TWICE A DAY.
     Route: 048
     Dates: start: 20181003
  3. TECFIDERA [Suspect]
     Active Substance: DIMETHYL FUMARATE
     Dosage: ADVISED BY PHYSICIAN
     Route: 048
  4. TECFIDERA [Suspect]
     Active Substance: DIMETHYL FUMARATE
     Dosage: MD DECREASED DOSE TO 20MG BID DUE TO SEVERE SE
     Route: 048

REACTIONS (7)
  - Hypophagia [Unknown]
  - Dyspepsia [Recovered/Resolved]
  - Abdominal discomfort [Unknown]
  - Nausea [Not Recovered/Not Resolved]
  - Prescribed underdose [Unknown]
  - Product dose omission [Unknown]
  - Diarrhoea [Not Recovered/Not Resolved]
